FAERS Safety Report 17642047 (Version 1)
Quarter: 2020Q2

REPORT INFORMATION
  Report Type: Spontaneous
  Country: FR (occurrence: FR)
  Receive Date: 20200408
  Receipt Date: 20200408
  Transmission Date: 20200713
  Serious: Yes (Hospitalization)
  Sender: FDA-Public Use
  Company Number: FR-ABBVIE-20K-056-3352944-00

PATIENT
  Age: 43 Year
  Sex: Female

DRUGS (3)
  1. AUGMENTIN [Suspect]
     Active Substance: AMOXICILLIN\CLAVULANATE POTASSIUM
     Indication: CORONAVIRUS INFECTION
     Route: 042
     Dates: start: 20200315, end: 20200319
  2. KALETRA [Suspect]
     Active Substance: LOPINAVIR\RITONAVIR
     Indication: CORONAVIRUS INFECTION
     Dosage: MORNING AND EVENING
     Route: 048
     Dates: start: 20200315, end: 20200319
  3. AMOXICILLINE [Concomitant]
     Active Substance: AMOXICILLIN
     Indication: CORONAVIRUS INFECTION
     Route: 042
     Dates: start: 20200314, end: 20200315

REACTIONS (2)
  - Hypertransaminasaemia [Recovered/Resolved]
  - Hepatocellular injury [Recovering/Resolving]

NARRATIVE: CASE EVENT DATE: 20200318
